FAERS Safety Report 19938059 (Version 3)
Quarter: 2022Q4

REPORT INFORMATION
  Report Type: Other
  Country: US (occurrence: None)
  Receive Date: 20211011
  Receipt Date: 20221006
  Transmission Date: 20230113
  Serious: Yes (Other)
  Sender: FDA-Public Use
  Company Number: US-ROCHE-2774494

PATIENT
  Age: 54 Year
  Sex: Male
  Weight: 118.04 kg

DRUGS (3)
  1. ZELBORAF [Suspect]
     Active Substance: VEMURAFENIB
     Indication: Hairy cell leukaemia
     Route: 048
     Dates: start: 202010
  2. ZELBORAF [Suspect]
     Active Substance: VEMURAFENIB
     Indication: Hairy cell leukaemia
     Dosage: TAKE 2 TABLETS BY MOUTH EVERY 12 HOURS DAILY
     Route: 048
     Dates: start: 20201021
  3. ZELBORAF [Suspect]
     Active Substance: VEMURAFENIB
     Route: 048
     Dates: start: 202011

REACTIONS (16)
  - Arrhythmia [Unknown]
  - Fatigue [Not Recovered/Not Resolved]
  - Oedema peripheral [Unknown]
  - Heart rate increased [Unknown]
  - Skin papilloma [Unknown]
  - COVID-19 [Unknown]
  - Pyrexia [Recovered/Resolved]
  - Blood pressure abnormal [Unknown]
  - Accidental overdose [Unknown]
  - Dyspnoea [Not Recovered/Not Resolved]
  - Arthralgia [Unknown]
  - Off label use [Unknown]
  - Oedema [Unknown]
  - Vascular neoplasm [Unknown]
  - Neoplasm skin [Unknown]
  - Nausea [Unknown]

NARRATIVE: CASE EVENT DATE: 20201001
